FAERS Safety Report 18351575 (Version 1)
Quarter: 2020Q4

REPORT INFORMATION
  Report Type: Spontaneous
  Country: US (occurrence: US)
  Receive Date: 20201006
  Receipt Date: 20201006
  Transmission Date: 20210114
  Serious: Yes (Other)
  Sender: FDA-Public Use
  Company Number: US-SA-2020SA269663

PATIENT

DRUGS (1)
  1. LANTUS SOLOSTAR [Suspect]
     Active Substance: INSULIN GLARGINE
     Indication: TYPE 2 DIABETES MELLITUS
     Dosage: 40U QAM + 50U QHS
     Route: 065
     Dates: start: 2005

REACTIONS (3)
  - Cough [Unknown]
  - Deafness [Unknown]
  - Inappropriate schedule of product administration [Unknown]
